FAERS Safety Report 5656166-9 (Version None)
Quarter: 2008Q1

REPORT INFORMATION
  Report Type: 
  Country: None (occurrence: None)
  Receive Date: 20080305
  Receipt Date: 20080228
  Transmission Date: 20080703
  Serious: Yes (Hospitalization)
  Sender: FDA-Public Use
  Company Number: 2007RL000398

PATIENT
  Age: 54 Year
  Sex: Female
  Weight: 112.4921 kg

DRUGS (2)
  1. LOVAZA [Suspect]
     Indication: BLOOD TRIGLYCERIDES INCREASED
     Dosage: 2 GM; BID; PO, 2 GM; BID; PO
     Route: 048
     Dates: start: 20060101, end: 20060501
  2. LOVAZA [Suspect]
     Indication: BLOOD TRIGLYCERIDES INCREASED
     Dosage: 2 GM; BID; PO, 2 GM; BID; PO
     Route: 048
     Dates: start: 20060501

REACTIONS (2)
  - HYPOMAGNESAEMIA [None]
  - POST PROCEDURAL COMPLICATION [None]
